FAERS Safety Report 19861117 (Version 1)
Quarter: 2021Q3

REPORT INFORMATION
  Report Type: Spontaneous
  Country: US (occurrence: US)
  Receive Date: 20210920
  Receipt Date: 20210920
  Transmission Date: 20211014
  Serious: Yes (Hospitalization)
  Sender: FDA-Public Use
  Company Number: None

PATIENT
  Age: 56 Year
  Sex: Female

DRUGS (1)
  1. EPCLUSA [Suspect]
     Active Substance: SOFOSBUVIR\VELPATASVIR
     Indication: HEPATITIS C
     Dosage: OTHER DOSE:400?100MG;?
     Route: 048
     Dates: start: 20210703

REACTIONS (8)
  - Head injury [None]
  - Abdominal pain [None]
  - Insomnia [None]
  - Skin disorder [None]
  - Chills [None]
  - Blood pressure increased [None]
  - Hypovitaminosis [None]
  - Pyrexia [None]

NARRATIVE: CASE EVENT DATE: 20210901
